FAERS Safety Report 7004128-1 (Version None)
Quarter: 2010Q3

REPORT INFORMATION
  Report Type: 
  Country: None (occurrence: None)
  Receive Date: 20100920
  Receipt Date: 20100129
  Transmission Date: 20110219
  Serious: No
  Sender: FDA-Public Use
  Company Number: US-WYE-H13377710

PATIENT

DRUGS (1)
  1. TORISEL [Suspect]

REACTIONS (3)
  - INFUSION SITE EXTRAVASATION [None]
  - INFUSION SITE SWELLING [None]
  - INFUSION SITE WARMTH [None]
